FAERS Safety Report 5410647-1 (Version None)
Quarter: 2007Q3

REPORT INFORMATION
  Report Type: 
  Country: None (occurrence: None)
  Receive Date: 20070810
  Receipt Date: 20070504
  Transmission Date: 20080115
  Serious: No
  Sender: FDA-Public Use
  Company Number: A0650310A

PATIENT
  Age: 29 Year
  Sex: Male

DRUGS (5)
  1. PAXIL [Suspect]
     Indication: DEPRESSION
     Dosage: 1TAB PER DAY
     Route: 048
     Dates: start: 20060724
  2. PREDNISONE TAB [Suspect]
     Dosage: 20MG THREE TIMES PER DAY
     Route: 048
     Dates: start: 20060724
  3. ROWASA ENEMAS [Concomitant]
     Dates: start: 20051201, end: 20060724
  4. COLAZAL [Concomitant]
     Dosage: 3TAB AS DIRECTED
     Route: 048
     Dates: start: 20051201
  5. TOPROL-XL [Concomitant]
     Dosage: 25MG PER DAY
     Dates: start: 20060601

REACTIONS (4)
  - ACNE [None]
  - ANXIETY [None]
  - DRUG INEFFECTIVE [None]
  - MUSCULOSKELETAL STIFFNESS [None]
